FAERS Safety Report 21974383 (Version 1)
Quarter: 2023Q1

REPORT INFORMATION
  Report Type: Spontaneous
  Country: US (occurrence: None)
  Receive Date: 20230209
  Receipt Date: 20230209
  Transmission Date: 20230418
  Serious: Yes (Other)
  Sender: FDA-Public Use
  Company Number: 2023A029830

PATIENT
  Sex: Male

DRUGS (26)
  1. NEXIUM [Suspect]
     Active Substance: ESOMEPRAZOLE MAGNESIUM
     Dosage: ONE CAPSULE BY MOUTH ONCE A DAY.
     Route: 048
     Dates: start: 20160322
  2. PAROXETINE [Concomitant]
     Active Substance: PAROXETINE
  3. CIALIS [Concomitant]
     Active Substance: TADALAFIL
  4. NAPROXEN [Concomitant]
     Active Substance: NAPROXEN
  5. IBUPROFEN [Concomitant]
     Active Substance: IBUPROFEN
  6. OXYCODONE [Concomitant]
     Active Substance: OXYCODONE
  7. ALPRAZOLAM [Concomitant]
     Active Substance: ALPRAZOLAM
  8. DOCUSATE [Concomitant]
     Active Substance: DOCUSATE
  9. TRAZODONE [Concomitant]
     Active Substance: TRAZODONE HYDROCHLORIDE
  10. DICYCLOMINE [Concomitant]
     Active Substance: DICYCLOMINE HYDROCHLORIDE
  11. FOLIC ACID [Concomitant]
     Active Substance: FOLIC ACID
  12. SPIRONOLACTONE [Concomitant]
     Active Substance: SPIRONOLACTONE
  13. POTASSIUM CHLORIDE [Concomitant]
     Active Substance: POTASSIUM CHLORIDE
  14. DIAZEPAM [Concomitant]
     Active Substance: DIAZEPAM
  15. OXAPROZIN [Concomitant]
     Active Substance: OXAPROZIN
  16. VENTOLIN [Concomitant]
     Active Substance: ALBUTEROL SULFATE
  17. VITAMIN D2 [Concomitant]
     Active Substance: ERGOCALCIFEROL
  18. ZOLPIDEM [Concomitant]
     Active Substance: ZOLPIDEM TARTRATE
  19. BUMETANIDE [Concomitant]
     Active Substance: BUMETANIDE
  20. NYSTATIN [Concomitant]
     Active Substance: NYSTATIN
  21. SILDENAFIL [Concomitant]
     Active Substance: SILDENAFIL
  22. MELOXICAM [Concomitant]
     Active Substance: MELOXICAM
  23. CYCLOBENZAPRINE [Concomitant]
     Active Substance: CYCLOBENZAPRINE
  24. XIFAXAN [Concomitant]
     Active Substance: RIFAXIMIN
  25. MUPIROCIN [Concomitant]
     Active Substance: MUPIROCIN
  26. CIPROFLOXACIN [Concomitant]
     Active Substance: CIPROFLOXACIN

REACTIONS (2)
  - Gastric cancer [Unknown]
  - Neuroendocrine tumour [Unknown]
